FAERS Safety Report 16973207 (Version 2)
Quarter: 2020Q3

REPORT INFORMATION
  Report Type: Report from Study
  Country: US (occurrence: US)
  Receive Date: 20191030
  Receipt Date: 20200721
  Transmission Date: 20201102
  Serious: Yes (Hospitalization, Other)
  Sender: FDA-Public Use
  Company Number: US-AMGEN-USASP2019177259

PATIENT
  Age: 53 Year
  Sex: Female

DRUGS (3)
  1. ENBREL [Suspect]
     Active Substance: ETANERCEPT
     Indication: RHEUMATOID ARTHRITIS
     Dosage: UNK
     Route: 065
  2. ENBREL [Suspect]
     Active Substance: ETANERCEPT
     Dosage: 50 MILLIGRAM, QWK
     Route: 065
     Dates: start: 2020
  3. ENBREL [Suspect]
     Active Substance: ETANERCEPT
     Dosage: 50 MILLIGRAM, QWK
     Route: 065

REACTIONS (7)
  - Rheumatoid arthritis [Not Recovered/Not Resolved]
  - Fall [Unknown]
  - Device issue [Unknown]
  - Neck surgery [Unknown]
  - Pelvic fracture [Recovered/Resolved]
  - Clavicle fracture [Recovering/Resolving]
  - Wrong technique in product usage process [Unknown]

NARRATIVE: CASE EVENT DATE: 2017
